FAERS Safety Report 4366993-6 (Version None)
Quarter: 2004Q2

REPORT INFORMATION
  Report Type: 
  Country: None (occurrence: None)
  Receive Date: 20040527
  Receipt Date: 20040527
  Transmission Date: 20050107
  Serious: Yes (Hospitalization)
  Sender: FDA-Public Use
  Company Number: None

PATIENT
  Age: 49 Year
  Sex: Male
  Weight: 126.5536 kg

DRUGS (1)
  1. CHLORPROMAZINE [Suspect]
     Indication: BIPOLAR DISORDER
     Dosage: 50 QHS ORAL
     Route: 048

REACTIONS (3)
  - BLOOD CREATINE INCREASED [None]
  - BLOOD CREATINE PHOSPHOKINASE INCREASED [None]
  - CARDIAC FAILURE CONGESTIVE [None]
